FAERS Safety Report 6008206-5 (Version None)
Quarter: 2008Q4

REPORT INFORMATION
  Report Type: 
  Country: None (occurrence: None)
  Receive Date: 20081217
  Receipt Date: 20080801
  Transmission Date: 20090506
  Serious: No
  Sender: FDA-Public Use
  Company Number: US-ASTRAZENECA-2008UW15393

PATIENT
  Age: 76 Year
  Sex: Female
  Weight: 74.8 kg

DRUGS (3)
  1. CRESTOR [Suspect]
     Indication: HYPERCHOLESTEROLAEMIA
     Dosage: 20 MG
     Route: 048
     Dates: start: 20080620
  2. CRESTOR [Suspect]
     Indication: HYPERTRIGLYCERIDAEMIA
     Dosage: 20 MG
     Route: 048
     Dates: start: 20080620
  3. VITAMINS [Concomitant]

REACTIONS (1)
  - BLOOD TRIGLYCERIDES DECREASED [None]
